FAERS Safety Report 6732425-3 (Version None)
Quarter: 2010Q2

REPORT INFORMATION
  Report Type: 
  Country: None (occurrence: None)
  Receive Date: 20100519
  Receipt Date: 20100513
  Transmission Date: 20101027
  Serious: Yes (Other)
  Sender: FDA-Public Use
  Company Number: US-B.I. PHARMACEUTICALS,INC./RIDGEFIELD-2010-BP-05491BP

PATIENT
  Sex: Female

DRUGS (5)
  1. SPIRIVA [Suspect]
     Indication: CHRONIC OBSTRUCTIVE PULMONARY DISEASE
     Dosage: 18 MCG
     Route: 055
     Dates: start: 20091102
  2. SYMBICORT [Concomitant]
     Indication: ASTHMA
     Route: 055
     Dates: start: 20091102
  3. PROVENTIL [Concomitant]
     Indication: ASTHMA
     Route: 055
     Dates: start: 20091102
  4. VERAPAMIL [Concomitant]
     Indication: SUPRAVENTRICULAR TACHYARRHYTHMIA
     Dosage: 240 MG
     Route: 048
  5. VERAPAMIL [Concomitant]
     Indication: HYPERTENSION

REACTIONS (5)
  - CONCUSSION [None]
  - FALL [None]
  - HEAD INJURY [None]
  - LOSS OF CONSCIOUSNESS [None]
  - VITREOUS FLOATERS [None]
